FAERS Safety Report 8985412 (Version 1)
Quarter: 2012Q4

REPORT INFORMATION
  Report Type: Report from Study
  Country: US (occurrence: US)
  Receive Date: 20121226
  Receipt Date: 20121226
  Transmission Date: 20130627
  Serious: No
  Sender: FDA-Public Use
  Company Number: US-ABBOTT-12P-163-0974618-00

PATIENT
  Age: 8 Year
  Sex: Female
  Weight: 27.24 kg

DRUGS (1)
  1. LUPRON DEPOT 30 MG [Suspect]
     Indication: PRECOCIOUS PUBERTY
     Route: 030
     Dates: start: 20120827

REACTIONS (5)
  - Injection site macule [Not Recovered/Not Resolved]
  - Injection site erythema [Not Recovered/Not Resolved]
  - Pyrexia [Unknown]
  - Adverse drug reaction [Unknown]
  - Injection site pain [Unknown]
